FAERS Safety Report 5654486-5 (Version None)
Quarter: 2008Q1

REPORT INFORMATION
  Report Type: 
  Country: None (occurrence: None)
  Receive Date: 20080205
  Receipt Date: 20070129
  Transmission Date: 20080703
  Serious: Yes (Hospitalization)
  Sender: FDA-Public Use
  Company Number: MEDI-0005356

PATIENT
  Age: 34 Year
  Sex: Male

DRUGS (7)
  1. ETHYOL [Suspect]
     Indication: RADIOTHERAPY
     Dosage: 500 MG, 5 IN 5 D, SUBCUTANEOUS; 500 MG, 5 IN 5 D, SUBCUTANEOUS
     Route: 058
     Dates: start: 20070115, end: 20070101
  2. ETHYOL [Suspect]
     Indication: RADIOTHERAPY
     Dosage: 500 MG, 5 IN 5 D, SUBCUTANEOUS; 500 MG, 5 IN 5 D, SUBCUTANEOUS
     Route: 058
     Dates: start: 20070101, end: 20070113
  3. UNKNOWN CHEMOTHERAPY AGENT [Concomitant]
  4. RADIATION THERAPY [Concomitant]
  5. COMPAZINE [Concomitant]
  6. KYTRIL [Concomitant]
  7. LEVAQUIN (LEVOFLOACIN) [Concomitant]

REACTIONS (4)
  - HYPERSENSITIVITY [None]
  - HYPOTENSION [None]
  - PYREXIA [None]
  - SKIN EXFOLIATION [None]
